FAERS Safety Report 8006846-5 (Version None)
Quarter: 2011Q4

REPORT INFORMATION
  Report Type: 
  Country: None (occurrence: None)
  Receive Date: 20111227
  Receipt Date: 20111219
  Transmission Date: 20120403
  Serious: Yes (Hospitalization)
  Sender: FDA-Public Use
  Company Number: JP-B.I. PHARMACEUTICALS,INC./RIDGEFIELD-2011-BP-28424NB

PATIENT
  Age: 62 Year
  Sex: Male

DRUGS (2)
  1. VERAPAMIL HYDROCHLORIDE [Suspect]
     Route: 048
  2. PRADAXA [Suspect]
     Dosage: 220 MG
     Route: 048

REACTIONS (1)
  - CEREBRAL INFARCTION [None]
